FAERS Safety Report 8521047-X (Version None)
Quarter: 2012Q3

REPORT INFORMATION
  Report Type: 
  Country: None (occurrence: None)
  Receive Date: 20120719
  Receipt Date: 20120711
  Transmission Date: 20120928
  Serious: Yes (Hospitalization, Disabling, Other)
  Sender: FDA-Public Use
  Company Number: SE-JNJFOC-20111006229

PATIENT
  Age: 70 Year
  Sex: Male

DRUGS (18)
  1. FENTANYL-100 [Concomitant]
     Route: 065
  2. OMEPRAZOL ACTAVIS [Concomitant]
     Dosage: GASTRORESISTANT CAPSULE, HARD
     Route: 065
  3. PREDNISOLONE [Concomitant]
     Route: 065
  4. VITAMIN D [Concomitant]
     Dosage: 400IE
     Route: 065
  5. ASPIRIN [Concomitant]
     Route: 065
  6. ACTRAPID [Concomitant]
     Dosage: 100E/ML
     Route: 065
  7. MOVIPREP [Concomitant]
     Route: 065
  8. ACETAMINOPHEN [Concomitant]
     Route: 065
  9. REMICADE [Suspect]
     Indication: RHEUMATOID ARTHRITIS
     Dosage: AS NECESSARY
     Route: 042
     Dates: start: 20091217, end: 20091230
  10. FELODIPINE [Concomitant]
     Route: 065
  11. CALCIUM CARBONATE [Concomitant]
     Route: 065
  12. NOVOLOG MIX 70/30 [Concomitant]
     Route: 065
  13. ALENDRONATE SODIUM [Concomitant]
     Dosage: WEEK TABLET
     Route: 065
  14. PRIMPERAN TAB [Concomitant]
     Route: 065
  15. SIMVASTATIN [Concomitant]
     Route: 065
  16. METHOTREXATE [Concomitant]
     Dosage: 2,5 MG
     Route: 065
  17. LASIX [Concomitant]
     Route: 065
  18. METOPROLOL SUCCINATE [Concomitant]
     Route: 065

REACTIONS (9)
  - GASTRITIS [None]
  - DRY GANGRENE [None]
  - LEG AMPUTATION [None]
  - GASTRIC ULCER [None]
  - PSEUDOMONAS INFECTION [None]
  - GASTROINTESTINAL HAEMORRHAGE [None]
  - BACTERIAL INFECTION [None]
  - SEPSIS [None]
  - MYOCARDIAL INFARCTION [None]
